FAERS Safety Report 4580152-3 (Version None)
Quarter: 2005Q1

REPORT INFORMATION
  Report Type: 
  Country: None (occurrence: None)
  Receive Date: 20050203
  Receipt Date: 20050114
  Transmission Date: 20050727
  Serious: Yes (Other)
  Sender: FDA-Public Use
  Company Number: WAES 0501USA03482

PATIENT
  Age: 13 Year
  Sex: Male

DRUGS (2)
  1. ELSPAR [Suspect]
     Indication: ACUTE LYMPHOCYTIC LEUKAEMIA
     Dosage: 200 /
  2. CORTICOSTEROIDS [Concomitant]

REACTIONS (4)
  - CEREBRAL INFARCTION [None]
  - CONVULSION [None]
  - HAEMORRHAGE INTRACRANIAL [None]
  - HYPERGLYCAEMIA [None]
